FAERS Safety Report 9894125 (Version 1)
Quarter: 2014Q1

REPORT INFORMATION
  Report Type: Spontaneous
  Country: US (occurrence: US)
  Receive Date: 20140213
  Receipt Date: 20140213
  Transmission Date: 20141002
  Serious: Yes (Other)
  Sender: FDA-Public Use
  Company Number: US-PFIZER INC-2014037249

PATIENT
  Age: 45 Year
  Sex: Female
  Weight: 72.6 kg

DRUGS (4)
  1. LEVOXYL [Suspect]
     Indication: THYROID DISORDER
     Dosage: UNK
     Dates: start: 1999
  2. LEVOXYL [Suspect]
     Dosage: 125 UG, 1X/DAY
     Dates: end: 2013
  3. OXYCODONE [Concomitant]
     Indication: PAIN
     Dosage: 80 MG, 1X/DAY
  4. NORCO [Concomitant]
     Indication: PAIN
     Dosage: 10/325MG, 6X/DAY

REACTIONS (1)
  - Neoplasm malignant [Unknown]
